FAERS Safety Report 8916826 (Version 1)
Quarter: 2012Q4

REPORT INFORMATION
  Report Type: 
  Country: US (occurrence: US)
  Receive Date: 20121120
  Receipt Date: 20121120
  Transmission Date: 20130627
  Serious: Yes (Other)
  Sender: FDA-Public Use
  Company Number: US-COVIDIEN/TYCO HEALTHCARE/MALLINCKRODT-T201203877

PATIENT
  Sex: Male

DRUGS (7)
  1. HYDROMORPHONE [Suspect]
     Indication: PAIN
     Route: 042
  2. DIAZEPAM [Suspect]
     Indication: ANXIETY
  3. GABAPENTIN [Concomitant]
     Indication: PAIN
  4. DIPHENHYDRAMINE [Concomitant]
     Indication: ANXIETY
  5. ZOLPIDEM [Concomitant]
     Indication: INSOMNIA
  6. ZOLEDRONIC ACID [Concomitant]
     Indication: PAIN
     Dosage: 4 mg Q 6 hours
     Route: 042
  7. DEXAMETHASONE [Concomitant]
     Indication: PAIN
     Dosage: 4 mg Q 6 hours
     Route: 042

REACTIONS (3)
  - Neurotoxicity [Unknown]
  - Delirium [Unknown]
  - Sedation [Unknown]
